FAERS Safety Report 18881862 (Version 1)
Quarter: 2021Q1

REPORT INFORMATION
  Report Type: Report from Study
  Country: DE (occurrence: DE)
  Receive Date: 20210211
  Receipt Date: 20210211
  Transmission Date: 20210420
  Serious: Yes (Hospitalization)
  Sender: FDA-Public Use
  Company Number: DE-PFIZER INC-2021103345

PATIENT
  Age: 82 Year
  Sex: Female
  Weight: 61 kg

DRUGS (5)
  1. TRASTUZUMAB. [Suspect]
     Active Substance: TRASTUZUMAB
     Indication: BREAST CANCER
     Dosage: 366 MG
     Route: 042
     Dates: start: 20200813
  2. PERTUZUMAB. [Suspect]
     Active Substance: PERTUZUMAB
     Dosage: 420 MG
     Route: 065
     Dates: start: 20200813
  3. LIXIANA [Concomitant]
     Active Substance: EDOXABAN TOSYLATE
     Dosage: 60 MG
     Route: 048
     Dates: start: 20200514
  4. TRASTUZUMAB. [Suspect]
     Active Substance: TRASTUZUMAB
     Dosage: 488 MG
     Route: 042
     Dates: start: 20200709
  5. PERTUZUMAB. [Suspect]
     Active Substance: PERTUZUMAB
     Indication: BREAST CANCER
     Dosage: LINE 1
     Route: 065
     Dates: start: 20200709, end: 20200924

REACTIONS (1)
  - Cardiomyopathy acute [Not Recovered/Not Resolved]

NARRATIVE: CASE EVENT DATE: 20200820
